FAERS Safety Report 5297615-8 (Version None)
Quarter: 2007Q2

REPORT INFORMATION
  Report Type: 
  Country: None (occurrence: None)
  Receive Date: 20070411
  Receipt Date: 20070411
  Transmission Date: 20071010
  Serious: Yes (Other)
  Sender: FDA-Public Use
  Company Number: None

PATIENT
  Age: 59 Year
  Sex: Male
  Weight: 67.6 kg

DRUGS (1)
  1. TUBERCULIN, PURIFIED PROTEIN DE [Suspect]
     Indication: TUBERCULIN TEST
     Dosage: 0.1ML, 0.1ML, SUBCUTAN
     Route: 058
     Dates: start: 20070114, end: 20070114

REACTIONS (1)
  - RASH [None]
